FAERS Safety Report 12902372 (Version 1)
Quarter: 2016Q4

REPORT INFORMATION
  Report Type: Spontaneous
  Country: US (occurrence: US)
  Receive Date: 20161031
  Receipt Date: 20161031
  Transmission Date: 20170207
  Serious: Yes (Life-Threatening, Hospitalization, Disabling)
  Sender: FDA-Public Use
  Company Number: None

PATIENT
  Age: 86 Year
  Sex: Female
  Weight: 59 kg

DRUGS (1)
  1. XARELTO [Suspect]
     Active Substance: RIVAROXABAN

REACTIONS (1)
  - Lacunar stroke [None]

NARRATIVE: CASE EVENT DATE: 20161027
